FAERS Safety Report 6077886-0 (Version None)
Quarter: 2009Q1

REPORT INFORMATION
  Report Type: 
  Country: None (occurrence: None)
  Receive Date: 20090213
  Receipt Date: 20090206
  Transmission Date: 20090719
  Serious: Yes (Other)
  Sender: FDA-Public Use
  Company Number: GR-PFIZER INC-2009166373

PATIENT

DRUGS (2)
  1. ATORVASTATIN CALCIUM [Suspect]
     Indication: HYPERLIPIDAEMIA
     Dosage: 20 MG, 1X/DAY
     Route: 048
  2. ATORVASTATIN CALCIUM [Suspect]
     Indication: THROMBOCYTHAEMIA

REACTIONS (9)
  - ANGINA UNSTABLE [None]
  - AUTOIMMUNE THYROIDITIS [None]
  - DIABETES MELLITUS [None]
  - DYSPHAGIA [None]
  - DYSPNOEA [None]
  - HYPERTENSION [None]
  - OEDEMA PERIPHERAL [None]
  - PAIN IN EXTREMITY [None]
  - TONGUE OEDEMA [None]
